FAERS Safety Report 8114311-X (Version None)
Quarter: 2012Q1

REPORT INFORMATION
  Report Type: 
  Country: None (occurrence: None)
  Receive Date: 20120206
  Receipt Date: 20120123
  Transmission Date: 20120608
  Serious: Yes (Hospitalization)
  Sender: FDA-Public Use
  Company Number: US-BIOGENIDEC-2012BI003589

PATIENT
  Age: 58 Year
  Sex: Female

DRUGS (7)
  1. NEURONTIN [Concomitant]
  2. ZOLOFT [Concomitant]
  3. SYMMETRAL [Concomitant]
  4. FLEXERIL [Concomitant]
  5. AMBIEN [Concomitant]
  6. AVONEX [Suspect]
     Indication: MULTIPLE SCLEROSIS
     Route: 030
     Dates: start: 20081001
  7. PROVIGIL [Concomitant]

REACTIONS (1)
  - CHOLELITHIASIS [None]
